FAERS Safety Report 25975902 (Version 1)
Quarter: 2025Q4

REPORT INFORMATION
  Report Type: Spontaneous
  Country: CN (occurrence: CN)
  Receive Date: 20251029
  Receipt Date: 20251029
  Transmission Date: 20260118
  Serious: Yes (Other)
  Sender: BEIGENE
  Company Number: CN-BEIGENE-BGN-2025-018398

PATIENT
  Age: 55 Year
  Weight: 65 kg

DRUGS (6)
  1. TISLELIZUMAB [Suspect]
     Active Substance: TISLELIZUMAB
     Indication: Small cell lung cancer
     Dosage: 200 MILLIGRAM
  2. TISLELIZUMAB [Suspect]
     Active Substance: TISLELIZUMAB
     Indication: Metastases to pleura
     Dosage: 200 MILLIGRAM
     Route: 041
  3. TISLELIZUMAB [Suspect]
     Active Substance: TISLELIZUMAB
     Dosage: 200 MILLIGRAM
     Route: 041
  4. TISLELIZUMAB [Suspect]
     Active Substance: TISLELIZUMAB
     Dosage: 200 MILLIGRAM
  5. LOBAPLATIN [Suspect]
     Active Substance: LOBAPLATIN
     Indication: Small cell lung cancer
     Dosage: 60 MILLIGRAM
     Route: 041
  6. LOBAPLATIN [Suspect]
     Active Substance: LOBAPLATIN
     Indication: Metastases to pleura
     Dosage: 60 MILLIGRAM

REACTIONS (1)
  - Myelosuppression [Recovering/Resolving]
